FAERS Safety Report 17665093 (Version 2)
Quarter: 2020Q2

REPORT INFORMATION
  Report Type: Spontaneous
  Country: DE (occurrence: DE)
  Receive Date: 20200414
  Receipt Date: 20200415
  Transmission Date: 20200713
  Serious: Yes (Hospitalization)
  Sender: FDA-Public Use
  Company Number: DE-PFIZER INC-2020151221

PATIENT
  Age: 91 Year
  Sex: Male

DRUGS (7)
  1. RAMIPRIL. [Suspect]
     Active Substance: RAMIPRIL
     Dosage: 2.5 MG, 1X/DAY (1-0-0-0)
  2. PHENPROCOUMON [Suspect]
     Active Substance: PHENPROCOUMON
     Dosage: 3 MG, AS NEEDED (BY VALUE)
  3. ALLOPURINOL. [Concomitant]
     Active Substance: ALLOPURINOL
     Dosage: 100 MG, UNK (0.5-0-0-0)
  4. SIMVASTATIN. [Concomitant]
     Active Substance: SIMVASTATIN
     Dosage: 10 MG, UNK (0-0-1-0)
  5. TORASEMIDE [Suspect]
     Active Substance: TORSEMIDE
     Dosage: 10 MG, UNK (0.5-0-0-0)
  6. METOPROLOL SALT NOT SPECIFIED [Suspect]
     Active Substance: METOPROLOL
     Dosage: 47.5 MG, UNK (0.5-0-0.5-0)
  7. VALPROIC ACID. [Suspect]
     Active Substance: VALPROIC ACID
     Dosage: 150 MG, 1X/DAY (0-0-1-0)

REACTIONS (6)
  - Fall [Unknown]
  - General physical health deterioration [Unknown]
  - Balance disorder [Unknown]
  - Dizziness [Unknown]
  - Aspartate aminotransferase increased [Unknown]
  - Gamma-glutamyltransferase increased [Unknown]

NARRATIVE: CASE EVENT DATE: 20191205
